FAERS Safety Report 7333723-5 (Version None)
Quarter: 2011Q1

REPORT INFORMATION
  Report Type: 
  Country: None (occurrence: None)
  Receive Date: 20110306
  Receipt Date: 20110210
  Transmission Date: 20110831
  Serious: Yes (Other)
  Sender: FDA-Public Use
  Company Number: US-BAYER-2011-013953

PATIENT
  Age: 31 Year
  Sex: Male
  Weight: 73 kg

DRUGS (1)
  1. ALEVE (CAPLET) [Suspect]
     Dosage: BOTTLE COUNT 100S
     Route: 048

REACTIONS (1)
  - SOMNOLENCE [None]
